FAERS Safety Report 14984409 (Version 1)
Quarter: 2018Q2

REPORT INFORMATION
  Report Type: Spontaneous
  Country: US (occurrence: US)
  Receive Date: 20180518
  Receipt Date: 20180518
  Transmission Date: 20180711
  Serious: Yes (Disabling)
  Sender: FDA-Public Use
  Company Number: None

PATIENT
  Sex: Female
  Weight: 66.6 kg

DRUGS (8)
  1. NOVOLOG [Concomitant]
     Active Substance: INSULIN ASPART
  2. INSULIN PUMP [Concomitant]
     Active Substance: INSULIN NOS
  3. TRAZODONE [Concomitant]
     Active Substance: TRAZODONE HYDROCHLORIDE
  4. TEMAZAPAM [Concomitant]
     Active Substance: TEMAZEPAM
  5. MULTI VITAMIN [Concomitant]
     Active Substance: VITAMINS
  6. INDERAL [Suspect]
     Active Substance: PROPRANOLOL HYDROCHLORIDE
     Indication: ANXIETY
     Dosage: ?          QUANTITY:30 DF DOSAGE FORM;?
     Route: 048
     Dates: start: 20180517, end: 20180517
  7. WELLBUTRIN [Concomitant]
     Active Substance: BUPROPION HYDROCHLORIDE
  8. LEVOTHYROXINE. [Concomitant]
     Active Substance: LEVOTHYROXINE

REACTIONS (10)
  - Blood glucose abnormal [None]
  - Depression [None]
  - Skin discolouration [None]
  - Anxiety [None]
  - Chest pain [None]
  - Insomnia [None]
  - Crying [None]
  - Anger [None]
  - Suicidal ideation [None]
  - Pain in extremity [None]
